FAERS Safety Report 9202014 (Version 2)
Quarter: 2013Q2

REPORT INFORMATION
  Report Type: Spontaneous
  Country: US (occurrence: None)
  Receive Date: 20130328
  Receipt Date: 20130402
  Transmission Date: 20140414
  Serious: Yes (Other)
  Sender: FDA-Public Use
  Company Number: 2013SA031279

PATIENT
  Age: 49 Year
  Sex: Male

DRUGS (1)
  1. MENTHOL [Suspect]
     Indication: BACK PAIN
     Dosage: ..

REACTIONS (3)
  - Burns third degree [None]
  - Chemical injury [None]
  - Abasia [None]
